FAERS Safety Report 5333397-9 (Version None)
Quarter: 2007Q2

REPORT INFORMATION
  Report Type: 
  Country: None (occurrence: None)
  Receive Date: 20070522
  Receipt Date: 20070522
  Transmission Date: 20071010
  Serious: Yes (Hospitalization)
  Sender: FDA-Public Use
  Company Number: None

PATIENT
  Age: 63 Year
  Sex: Male
  Weight: 82 kg

DRUGS (11)
  1. ZOMETA [Suspect]
     Indication: GLIOBLASTOMA MULTIFORME
     Dosage: 4MG Q12 WEEKS IV
     Route: 042
     Dates: start: 20060817
  2. ZOMETA [Suspect]
     Indication: GLIOBLASTOMA MULTIFORME
     Dosage: 4MG Q12 WEEKS IV
     Route: 042
     Dates: start: 20061117
  3. ZOMETA [Suspect]
     Indication: GLIOBLASTOMA MULTIFORME
     Dosage: 4MG Q12 WEEKS IV
     Route: 042
     Dates: start: 20070202
  4. ZOMETA [Suspect]
     Indication: GLIOBLASTOMA MULTIFORME
     Dosage: 4MG Q12 WEEKS IV
     Route: 042
     Dates: start: 20070426
  5. ALTACE [Concomitant]
  6. DILANTIN [Concomitant]
  7. CELEXA [Concomitant]
  8. ZOCOR [Concomitant]
  9. PEPCID [Concomitant]
  10. KEPPRA [Concomitant]
  11. DECADRON [Concomitant]

REACTIONS (7)
  - ABULIA [None]
  - DEHYDRATION [None]
  - DIARRHOEA [None]
  - GENERAL PHYSICAL HEALTH DETERIORATION [None]
  - INFECTION [None]
  - NUCLEAR MAGNETIC RESONANCE IMAGING BRAIN ABNORMAL [None]
  - URINARY TRACT INFECTION [None]
